FAERS Safety Report 23362000 (Version 3)
Quarter: 2024Q1

REPORT INFORMATION
  Report Type: Spontaneous
  Country: US (occurrence: US)
  Receive Date: 20240103
  Receipt Date: 20240220
  Transmission Date: 20240409
  Serious: Yes (Hospitalization, Other)
  Sender: FDA-Public Use
  Company Number: US-Stemline Therapeutics, Inc.-2023ST005371

PATIENT
  Age: 79 Year
  Sex: Female

DRUGS (2)
  1. ORSERDU [Suspect]
     Active Substance: ELACESTRANT
     Indication: Product used for unknown indication
     Route: 048
     Dates: start: 20231101
  2. ORSERDU [Suspect]
     Active Substance: ELACESTRANT
     Dosage: 345MG ONCE DAILY.
     Route: 048
     Dates: start: 202310

REACTIONS (7)
  - Fall [Recovering/Resolving]
  - Foreign body in throat [Unknown]
  - Blood magnesium decreased [Unknown]
  - Product dose omission in error [Unknown]
  - Product dose omission issue [Unknown]
  - Somnolence [Unknown]
  - Fatigue [Recovering/Resolving]
